FAERS Safety Report 5907508-8 (Version None)
Quarter: 2008Q3

REPORT INFORMATION
  Report Type: 
  Country: None (occurrence: None)
  Receive Date: 20080929
  Receipt Date: 20080917
  Transmission Date: 20090109
  Serious: Yes (Life-Threatening, Hospitalization)
  Sender: FDA-Public Use
  Company Number: GXKR2008GB08911

PATIENT
  Age: 84 Year
  Sex: Male

DRUGS (6)
  1. ALLOPURINOL [Suspect]
     Indication: GOUT
     Dosage: 100 MG, BID, ORAL
     Route: 048
     Dates: start: 20080613, end: 20080715
  2. ASPIRIN ^BAYER^ (ACETYSALICYCLIC ACID) [Concomitant]
  3. BISOPROLOL FUMARATE [Concomitant]
  4. FUROSEMIDE [Concomitant]
  5. OMEPRAZOLE [Concomitant]
  6. PREDNISONE [Concomitant]

REACTIONS (1)
  - HEPATIC FAILURE [None]
